FAERS Safety Report 4280273-9 (Version None)
Quarter: 2004Q1

REPORT INFORMATION
  Report Type: 
  Country: None (occurrence: None)
  Receive Date: 20040126
  Receipt Date: 20040112
  Transmission Date: 20041129
  Serious: Yes (Other)
  Sender: FDA-Public Use
  Company Number: 2004002160

PATIENT
  Age: 40 Year
  Sex: Female
  Weight: 58.9676 kg

DRUGS (8)
  1. DIFLUCAN [Suspect]
     Indication: INFECTION
     Dosage: 200 MG (DAILY), ORAL
     Route: 048
     Dates: start: 20021201
  2. COMBIVENT [Suspect]
     Indication: CHRONIC OBSTRUCTIVE AIRWAYS DISEASE
     Dosage: INHALATION
     Route: 055
     Dates: end: 20030101
  3. TRIAMCINOLONE ACETONIDE (TRIAMCINOLON ACETONIDE) [Suspect]
     Indication: CHRONIC OBSTRUCTIVE AIRWAYS DISEASE
     Dosage: INHALATION
     Route: 055
     Dates: end: 20030101
  4. CETIRIZINE HCL [Concomitant]
  5. THYROID HORMONES [Concomitant]
  6. MONTELUKAST SODIUM (MONTELUKAST SODIUM) [Concomitant]
  7. TRAZODONE HCL [Concomitant]
  8. NYSTATIN [Concomitant]

REACTIONS (8)
  - DISEASE RECURRENCE [None]
  - DYSPHONIA [None]
  - DYSPNOEA [None]
  - FLUID RETENTION [None]
  - FUNGAL INFECTION [None]
  - NASAL SINUS DRAINAGE [None]
  - POLLAKIURIA [None]
  - SNEEZING [None]
